FAERS Safety Report 12618497 (Version 1)
Quarter: 2016Q3

REPORT INFORMATION
  Report Type: Spontaneous
  Country: US (occurrence: None)
  Receive Date: 20160802
  Receipt Date: 20160802
  Transmission Date: 20161109
  Serious: Yes (Hospitalization)
  Sender: FDA-Public Use
  Company Number: None

PATIENT
  Age: 64 Year
  Sex: Female

DRUGS (9)
  1. CALCIUM [Concomitant]
     Active Substance: CALCIUM
  2. VITAMIN D [Concomitant]
     Active Substance: CHOLECALCIFEROL
  3. AZATHIOPRINE. [Concomitant]
     Active Substance: AZATHIOPRINE
  4. JADENU [Suspect]
     Active Substance: DEFERASIROX
     Indication: CHELATION THERAPY
     Route: 048
     Dates: start: 20150916
  5. PREDNISONE. [Concomitant]
     Active Substance: PREDNISONE
  6. LETROZOLE. [Concomitant]
     Active Substance: LETROZOLE
  7. METOPROLOL. [Concomitant]
     Active Substance: METOPROLOL
  8. HYDROXYCHLOR [Concomitant]
     Active Substance: HYDROXYCHLOROQUINE
  9. MULTIVIT/FL [Concomitant]

REACTIONS (1)
  - Gingivitis [None]

NARRATIVE: CASE EVENT DATE: 20160721
